FAERS Safety Report 23042738 (Version 1)
Quarter: 2023Q4

REPORT INFORMATION
  Report Type: Report from Study
  Country: US (occurrence: None)
  Receive Date: 20231009
  Receipt Date: 20231009
  Transmission Date: 20240110
  Serious: Yes (Life-Threatening, Hospitalization)
  Sender: FDA-Public Use
  Company Number: US-ROCHE-2240963

PATIENT
  Age: 77 Year
  Sex: Female
  Weight: 61.4 kg

DRUGS (3)
  1. ATEZOLIZUMAB [Suspect]
     Active Substance: ATEZOLIZUMAB
     Indication: Ovarian epithelial cancer
     Dosage: ON 12/DEC/2018, SHE RECEIVED LAST DOSE OF ATEZOLIZUMAB
     Route: 042
     Dates: start: 20180627
  2. BEVACIZUMAB [Suspect]
     Active Substance: BEVACIZUMAB
     Indication: Ovarian epithelial cancer
     Dosage: ON 12/DEC/2018, SHE RECEIVED LAST DOSE OF BEVACIZUMAB
     Route: 042
     Dates: start: 20180627
  3. DOXORUBICIN HYDROCHLORIDE [Suspect]
     Active Substance: DOXORUBICIN HYDROCHLORIDE
     Indication: Ovarian epithelial cancer
     Dosage: ON 28/NOV/2018, SHE RECEIVED LAST DOSE OF LIPOSOMAL DOXORUBICIN.
     Route: 042
     Dates: start: 20180627

REACTIONS (1)
  - Wound dehiscence [Recovering/Resolving]

NARRATIVE: CASE EVENT DATE: 20181221
